FAERS Safety Report 17544906 (Version 2)
Quarter: 2020Q2

REPORT INFORMATION
  Report Type: Spontaneous
  Country: US (occurrence: US)
  Receive Date: 20200316
  Receipt Date: 20200415
  Transmission Date: 20200713
  Serious: No
  Sender: FDA-Public Use
  Company Number: US-PFIZER INC-2020112499

PATIENT
  Age: 52 Year
  Sex: Female
  Weight: 93.42 kg

DRUGS (5)
  1. XELJANZ XR [Suspect]
     Active Substance: TOFACITINIB CITRATE
     Indication: RHEUMATOID ARTHRITIS
     Dosage: 11 MG, DAILY
     Route: 048
  2. VITAMIN D3 [Concomitant]
     Active Substance: CHOLECALCIFEROL
     Dosage: 10 UG, UNK
  3. TOPAMAX [Concomitant]
     Active Substance: TOPIRAMATE
     Dosage: 100 MG, UNK
  4. SAXENDA [Concomitant]
     Active Substance: LIRAGLUTIDE
     Dosage: UNK(3 MG/0.5ML PEN INJCTR)
  5. VYVANSE [Concomitant]
     Active Substance: LISDEXAMFETAMINE DIMESYLATE
     Dosage: 10 MG, UNK

REACTIONS (3)
  - Sinusitis [Unknown]
  - Nasopharyngitis [Unknown]
  - Visual impairment [Unknown]
